FAERS Safety Report 19086176 (Version 1)
Quarter: 2021Q2

REPORT INFORMATION
  Report Type: Spontaneous
  Country: FR (occurrence: FR)
  Receive Date: 20210402
  Receipt Date: 20210402
  Transmission Date: 20210717
  Serious: Yes (Hospitalization, Other)
  Sender: FDA-Public Use
  Company Number: FR-PFIZER INC-2021332585

PATIENT
  Age: 5 Year
  Sex: Male
  Weight: 25 kg

DRUGS (2)
  1. DULOXETINE HYDROCHLORIDE. [Suspect]
     Active Substance: DULOXETINE HYDROCHLORIDE
     Dosage: 360 MG, SINGLE
     Route: 048
  2. XANAX [Suspect]
     Active Substance: ALPRAZOLAM
     Dosage: 1 DF, SINGLE
     Route: 048

REACTIONS (5)
  - Vomiting [Recovered/Resolved]
  - Off label use [Unknown]
  - Accidental overdose [Recovered/Resolved]
  - Accidental poisoning [Unknown]
  - Somnolence [Recovered/Resolved]

NARRATIVE: CASE EVENT DATE: 20210227
